FAERS Safety Report 24164524 (Version 1)
Quarter: 2024Q3

REPORT INFORMATION
  Report Type: Report from Study
  Country: EG (occurrence: EG)
  Receive Date: 20240801
  Receipt Date: 20240801
  Transmission Date: 20241016
  Serious: Yes (Hospitalization, Other)
  Sender: ABBVIE
  Company Number: EG-ABBVIE-5858914

PATIENT
  Age: 9 Year
  Sex: Male

DRUGS (2)
  1. HUMIRA [Suspect]
     Active Substance: ADALIMUMAB
     Indication: Uveitis
     Dosage: HALF AN INJECTION?FORM STRENGTH: 40MG
     Route: 058
     Dates: start: 2020
  2. HUMIRA [Suspect]
     Active Substance: ADALIMUMAB
     Dosage: HALF AN INJECTION?FORM STRENGTH: 40MG
     Route: 058

REACTIONS (3)
  - Cataract [Recovered/Resolved]
  - Incorrect dose administered [Unknown]
  - Adhesiolysis [Unknown]

NARRATIVE: CASE EVENT DATE: 20240601
